FAERS Safety Report 6684813-1 (Version None)
Quarter: 2010Q2

REPORT INFORMATION
  Report Type: 
  Country: None (occurrence: None)
  Receive Date: 20100416
  Receipt Date: 20100412
  Transmission Date: 20101027
  Serious: Yes (Hospitalization, Other)
  Sender: FDA-Public Use
  Company Number: US-ASTRAZENECA-2009SE33162

PATIENT
  Age: 62 Year
  Sex: Female

DRUGS (7)
  1. SYMBICORT [Suspect]
     Indication: ASTHMA
     Dosage: 160/4.5 UG
     Route: 055
     Dates: start: 20091214, end: 20091221
  2. NEXIUM [Suspect]
     Route: 048
  3. CRESTOR [Suspect]
     Route: 048
     Dates: start: 20091201
  4. OMNARIS [Concomitant]
  5. XYZAL [Concomitant]
  6. VENTOLIN [Concomitant]
  7. PREDNISONE [Concomitant]

REACTIONS (6)
  - ANGIOPLASTY [None]
  - CEREBROVASCULAR ACCIDENT [None]
  - DIPLOPIA [None]
  - DYSPNOEA [None]
  - HEADACHE [None]
  - LACRIMATION INCREASED [None]
